FAERS Safety Report 16332713 (Version 1)
Quarter: 2019Q2

REPORT INFORMATION
  Report Type: Spontaneous
  Country: US (occurrence: US)
  Receive Date: 20190520
  Receipt Date: 20190520
  Transmission Date: 20190711
  Serious: No
  Sender: FDA-Public Use
  Company Number: US-TARO-2018TAR00568

PATIENT
  Sex: Female
  Weight: 53.52 kg

DRUGS (3)
  1. ARMOUR THYROID [Concomitant]
     Active Substance: THYROID, PORCINE
  2. CARBAMAZEPINE EXTENDED RELEASE TABLETS USP 100MG [Suspect]
     Active Substance: CARBAMAZEPINE
     Dosage: 100 MG, 1X/DAY
     Route: 048
     Dates: start: 201807, end: 2018
  3. CARBAMAZEPINE EXTENDED RELEASE TABLETS USP 100MG [Suspect]
     Active Substance: CARBAMAZEPINE
     Indication: TRIGEMINAL NEURALGIA
     Dosage: 100 MG, 1X/DAY
     Route: 048
     Dates: start: 201806, end: 2018

REACTIONS (6)
  - Rash [Recovered/Resolved]
  - Headache [Unknown]
  - Fatigue [Unknown]
  - Prescribed underdose [Recovered/Resolved]
  - Lethargy [Unknown]
  - Stomatitis [Not Recovered/Not Resolved]

NARRATIVE: CASE EVENT DATE: 2018
